FAERS Safety Report 4840376-4 (Version None)
Quarter: 2005Q4

REPORT INFORMATION
  Report Type: 
  Country: None (occurrence: None)
  Receive Date: 20051025
  Receipt Date: 20040920
  Transmission Date: 20060501
  Serious: Yes (Hospitalization)
  Sender: FDA-Public Use
  Company Number: 2004-BP-05540BP

PATIENT
  Age: 67 Year
  Sex: Male

DRUGS (3)
  1. COMBIVENT [Suspect]
     Indication: EMPHYSEMA
     Dosage: 8 PUF (SEE TEXT,18/103MCG/PUFF, 2 PUFFS QID),IH
     Dates: start: 20030601
  2. ASA (ACETYLSALICYCLIC ACID) [Concomitant]
  3. COD LIVER OIL (COD-LIVER OIL) [Concomitant]

REACTIONS (2)
  - DYSPNOEA [None]
  - THERAPEUTIC RESPONSE DECREASED [None]
